FAERS Safety Report 7124978-0 (Version None)
Quarter: 2010Q4

REPORT INFORMATION
  Report Type: 
  Country: None (occurrence: None)
  Receive Date: 20101129
  Receipt Date: 20101118
  Transmission Date: 20110411
  Serious: Yes (Hospitalization)
  Sender: FDA-Public Use
  Company Number: DE-MILLENNIUM PHARMACEUTICALS, INC.-2010-05646

PATIENT

DRUGS (1)
  1. VELCADE [Suspect]
     Indication: MULTIPLE MYELOMA
     Dosage: 3.11 MG, CYCLIC
     Route: 042
     Dates: start: 20101025, end: 20101104

REACTIONS (2)
  - FEBRILE NEUTROPENIA [None]
  - VERTEBROPLASTY [None]
